FAERS Safety Report 9579956 (Version 1)
Quarter: 2013Q3

REPORT INFORMATION
  Report Type: Spontaneous
  Country: US (occurrence: None)
  Receive Date: 20130930
  Receipt Date: 20130930
  Transmission Date: 20140515
  Serious: Yes (Other)
  Sender: FDA-Public Use
  Company Number: None

PATIENT
  Age: 61 Year
  Sex: Male

DRUGS (1)
  1. SYMBICORT INHALER [Suspect]
     Indication: BRONCHITIS CHRONIC
     Dosage: 2 PUFFS
     Route: 055
     Dates: start: 20130820, end: 20130906

REACTIONS (1)
  - Candida infection [None]
